FAERS Safety Report 21008893 (Version 1)
Quarter: 2022Q2

REPORT INFORMATION
  Report Type: Spontaneous
  Country: US (occurrence: US)
  Receive Date: 20220627
  Receipt Date: 20220627
  Transmission Date: 20220721
  Serious: Yes (Other)
  Sender: FDA-Public Use
  Company Number: US-CELLTRION INC.-2022US009785

PATIENT

DRUGS (4)
  1. TRUXIMA [Suspect]
     Active Substance: RITUXIMAB-ABBS
     Indication: Thrombocytopenia
     Dosage: 700 MG, WEEKLY
     Dates: start: 20220329
  2. TRUXIMA [Suspect]
     Active Substance: RITUXIMAB-ABBS
     Indication: Immune thrombocytopenia
     Dosage: 700 MG, WEEKLY
     Dates: start: 202205
  3. TRUXIMA [Suspect]
     Active Substance: RITUXIMAB-ABBS
     Dosage: 700 MG, WEEKLY (THERAPY DATE REPORTED AS 13/2022)
  4. TRUXIMA [Suspect]
     Active Substance: RITUXIMAB-ABBS
     Dosage: 700 MG, WEEKLY
     Dates: start: 20220420

REACTIONS (3)
  - Immune thrombocytopenia [Unknown]
  - Thrombocytopenia [Unknown]
  - Off label use [Unknown]
